FAERS Safety Report 9174144 (Version 1)
Quarter: 2013Q1

REPORT INFORMATION
  Report Type: Spontaneous
  Country: AU (occurrence: AU)
  Receive Date: 20130320
  Receipt Date: 20130320
  Transmission Date: 20140127
  Serious: Yes (Hospitalization)
  Sender: FDA-Public Use
  Company Number: PHHY2013AU024889

PATIENT
  Age: 1 Year
  Sex: Female
  Weight: 9.6 kg

DRUGS (1)
  1. OMEPRAZOLE [Suspect]
     Dosage: UNK
     Dates: start: 20120307, end: 20121212

REACTIONS (2)
  - Haematochezia [Recovered/Resolved]
  - Clostridial infection [Recovered/Resolved]
